FAERS Safety Report 8241389 (Version 4)
Quarter: 2014Q1

REPORT INFORMATION
  Report Type: Spontaneous
  Country: US (occurrence: US)
  Receive Date: 20111111
  Receipt Date: 20140211
  Transmission Date: 20141002
  Serious: Yes (Death, Hospitalization)
  Sender: FDA-Public Use
  Company Number: US-GLAXOSMITHKLINE-A0952548A

PATIENT
  Age: 68 Year
  Sex: Female
  Weight: 144.5 kg

DRUGS (1)
  1. AVANDIA [Suspect]
     Indication: DIABETES MELLITUS
     Dosage: 8MG PER DAY
     Route: 048
     Dates: start: 2000

REACTIONS (5)
  - Myocardial infarction [Fatal]
  - Cardio-respiratory arrest [Fatal]
  - Atrial fibrillation [Unknown]
  - Cardiac failure congestive [Unknown]
  - Angina pectoris [Unknown]
